FAERS Safety Report 12644587 (Version 1)
Quarter: 2016Q3

REPORT INFORMATION
  Report Type: Spontaneous
  Country: US (occurrence: US)
  Receive Date: 20160811
  Receipt Date: 20160811
  Transmission Date: 20161109
  Serious: Yes (Disabling, Other)
  Sender: FDA-Public Use
  Company Number: US-DENTSPLY-2016SCDP000167

PATIENT

DRUGS (1)
  1. 2% XYLOCAINE DENTAL  WITH EPINEPHRINE 1-100,000 [Suspect]
     Active Substance: EPINEPHRINE\LIDOCAINE
     Indication: LOCAL ANAESTHESIA
     Dosage: 1 CARPULE
     Route: 004

REACTIONS (9)
  - Headache [Unknown]
  - Cerebral haemorrhage [Unknown]
  - Haematoma [Unknown]
  - Physical disability [Unknown]
  - Blood pressure increased [Unknown]
  - Impaired work ability [Unknown]
  - Executive dysfunction [Unknown]
  - Cerebrovascular accident [Unknown]
  - Ruptured cerebral aneurysm [Unknown]
